FAERS Safety Report 10032588 (Version 3)
Quarter: 2014Q2

REPORT INFORMATION
  Report Type: Spontaneous
  Country: JP (occurrence: JP)
  Receive Date: 20140324
  Receipt Date: 20140528
  Transmission Date: 20141212
  Serious: Yes (Hospitalization)
  Sender: FDA-Public Use
  Company Number: JP-SA-2014SA034024

PATIENT
  Age: 65 Year
  Sex: Female

DRUGS (8)
  1. AVAPRO [Suspect]
     Indication: HYPERTENSION
     Route: 048
     Dates: start: 20130709, end: 20140130
  2. ATORVASTATIN CALCIUM [Concomitant]
     Indication: HYPERLIPIDAEMIA
     Route: 048
     Dates: start: 20130515, end: 20140223
  3. CADUET [Concomitant]
     Indication: HYPERTENSION
     Route: 048
     Dates: end: 20130514
  4. CADUET [Concomitant]
     Indication: HYPERLIPIDAEMIA
     Route: 048
     Dates: end: 20130514
  5. ECARD [Concomitant]
     Indication: HYPERTENSION
     Route: 048
     Dates: start: 20130515, end: 20130611
  6. AIMIX [Concomitant]
     Indication: HYPERTENSION
     Route: 048
     Dates: start: 20130612, end: 20130708
  7. AMLODIPINE BESILATE [Concomitant]
     Indication: HYPERTENSION
     Route: 048
     Dates: start: 20140131, end: 20140218
  8. BETAXOLOL HYDROCHLORIDE [Concomitant]
     Route: 048
     Dates: start: 20140219, end: 20140223

REACTIONS (2)
  - Pancytopenia [Recovering/Resolving]
  - Rash [Recovering/Resolving]
